FAERS Safety Report 7512865-5 (Version None)
Quarter: 2011Q2

REPORT INFORMATION
  Report Type: 
  Country: None (occurrence: None)
  Receive Date: 20110525
  Receipt Date: 20110525
  Transmission Date: 20111010
  Serious: Yes (Life-Threatening, Hospitalization)
  Sender: FDA-Public Use
  Company Number: None

PATIENT
  Sex: Male
  Weight: 73 kg

DRUGS (1)
  1. FERAHEME [Suspect]
     Indication: IRON DEFICIENCY ANAEMIA
     Dosage: 510 MG ONCE IV
     Route: 042
     Dates: start: 20110516, end: 20110516

REACTIONS (4)
  - VOMITING [None]
  - WHEEZING [None]
  - HYPOTENSION [None]
  - ANAPHYLACTIC REACTION [None]
